FAERS Safety Report 5406080-9 (Version None)
Quarter: 2007Q3

REPORT INFORMATION
  Report Type: 
  Country: None (occurrence: None)
  Receive Date: 20070806
  Receipt Date: 20070726
  Transmission Date: 20080115
  Serious: Yes (Other)
  Sender: FDA-Public Use
  Company Number: IE-ASTRAZENECA-2007GB01581

PATIENT
  Sex: Female

DRUGS (1)
  1. TAMOXIFEN CITRATE [Suspect]
     Indication: BREAST CANCER
     Route: 048

REACTIONS (3)
  - DEEP VEIN THROMBOSIS [None]
  - FALL [None]
  - SKELETAL INJURY [None]
